FAERS Safety Report 19752041 (Version 1)
Quarter: 2021Q3

REPORT INFORMATION
  Report Type: Report from Study
  Country: US (occurrence: US)
  Receive Date: 20210827
  Receipt Date: 20210827
  Transmission Date: 20211014
  Serious: Yes (Hospitalization, Other)
  Sender: FDA-Public Use
  Company Number: US-UNITED THERAPEUTICS-UNT-2021-016615

PATIENT
  Age: 72 Year
  Sex: Female
  Weight: 72.56 kg

DRUGS (3)
  1. TREPROSTINIL SODIUM (IV) [Suspect]
     Active Substance: TREPROSTINIL SODIUM
     Dosage: 0.02275 ?G/KG, CONTINUING
     Route: 041
     Dates: start: 2021
  2. TREPROSTINIL SODIUM (IV) [Suspect]
     Active Substance: TREPROSTINIL SODIUM
     Indication: PULMONARY ARTERIAL HYPERTENSION
     Dosage: UNK, CONTINUING
     Route: 041
     Dates: start: 20210327
  3. WARFARIN [Suspect]
     Active Substance: WARFARIN
     Indication: PRODUCT USED FOR UNKNOWN INDICATION
     Dosage: UNK
     Route: 065

REACTIONS (2)
  - Dyspnoea [Unknown]
  - Internal haemorrhage [Unknown]

NARRATIVE: CASE EVENT DATE: 20210821
